FAERS Safety Report 9106518 (Version 1)
Quarter: 2013Q1

REPORT INFORMATION
  Report Type: Spontaneous
  Country: US (occurrence: US)
  Receive Date: 20130221
  Receipt Date: 20130221
  Transmission Date: 20140127
  Serious: Yes (Other)
  Sender: FDA-Public Use
  Company Number: PHEH2013US004092

PATIENT
  Sex: Female

DRUGS (3)
  1. FOCALIN XR [Suspect]
     Dosage: 45 MG, (20 MG IN THE MORNING AND 25 MG IN THE AFTERNOON))
  2. CLONIDINE [Concomitant]
     Dosage: 0.05 MG, BID
  3. KAPVAY [Concomitant]
     Dosage: 0.2 MG, BID

REACTIONS (3)
  - Attention deficit/hyperactivity disorder [Unknown]
  - Obsessive-compulsive disorder [Unknown]
  - Anxiety disorder [Unknown]
